FAERS Safety Report 18682090 (Version 1)
Quarter: 2020Q4

REPORT INFORMATION
  Report Type: Report from Study
  Country: FR (occurrence: FR)
  Receive Date: 20201230
  Receipt Date: 20201230
  Transmission Date: 20210114
  Serious: Yes (Other)
  Sender: FDA-Public Use
  Company Number: FR-JNJFOC-20200736467

PATIENT
  Age: 17 Year
  Sex: Female
  Weight: 55 kg

DRUGS (24)
  1. ETANERCEPT [Concomitant]
     Active Substance: ETANERCEPT
     Route: 065
     Dates: start: 20190515, end: 20191008
  2. STELARA [Suspect]
     Active Substance: USTEKINUMAB
     Indication: PSORIASIS
     Route: 058
     Dates: start: 20180428, end: 20200204
  3. STELARA [Suspect]
     Active Substance: USTEKINUMAB
     Route: 058
     Dates: start: 201805
  4. KETODERM [BETAMETHASONE DIPROPIONATE;GENTAMICIN SULFATE;KETOCONAZOLE] [Concomitant]
     Route: 065
     Dates: start: 20111026, end: 2012
  5. SPECIAFOLDINE [Concomitant]
     Active Substance: FOLIC ACID
     Route: 065
     Dates: start: 20160804, end: 201702
  6. VASELIX [Concomitant]
     Route: 065
     Dates: start: 20111026, end: 20111102
  7. STELARA [Suspect]
     Active Substance: USTEKINUMAB
     Route: 058
     Dates: start: 201910
  8. BETNEVAL [Concomitant]
     Active Substance: BETAMETHASONE VALERATE
     Route: 048
     Dates: start: 20111026, end: 2016
  9. BETNEVAL [Concomitant]
     Active Substance: BETAMETHASONE VALERATE
     Route: 065
     Dates: start: 20111103, end: 2012
  10. CLARELUX [Concomitant]
     Active Substance: CLOBETASOL PROPIONATE
     Route: 065
     Dates: start: 2016, end: 20160614
  11. LOCAPRED [Concomitant]
     Active Substance: DESONIDE
     Route: 065
     Dates: start: 2011, end: 2012
  12. STELARA [Suspect]
     Active Substance: USTEKINUMAB
     Route: 058
     Dates: start: 201912
  13. DAIVONEX [Concomitant]
     Active Substance: CALCIPOTRIENE
     Route: 065
     Dates: start: 201106, end: 2011
  14. KERTYOL [SALICYLIC ACID] [Concomitant]
     Route: 065
     Dates: start: 2011, end: 2011
  15. STELARA [Suspect]
     Active Substance: USTEKINUMAB
     Route: 058
     Dates: start: 201902
  16. REMICADE [Suspect]
     Active Substance: INFLIXIMAB
     Indication: PSORIASIS
     Route: 042
     Dates: start: 20200204, end: 20200512
  17. ADALIMUMAB [Concomitant]
     Active Substance: ADALIMUMAB
     Route: 065
     Dates: start: 20180409, end: 20180514
  18. COSENTYX [Concomitant]
     Active Substance: SECUKINUMAB
     Route: 065
     Dates: start: 20200604
  19. STELARA [Suspect]
     Active Substance: USTEKINUMAB
     Route: 058
     Dates: start: 201808
  20. STELARA [Suspect]
     Active Substance: USTEKINUMAB
     Route: 058
     Dates: start: 201811
  21. DIPROSONE [BETAMETHASONE SODIUM PHOSPHATE] [Concomitant]
     Route: 065
     Dates: start: 201106, end: 2011
  22. METHOTREXATE. [Concomitant]
     Active Substance: METHOTREXATE
     Route: 065
     Dates: start: 20200512, end: 20200604
  23. ENSTILAR [Concomitant]
     Active Substance: BETAMETHASONE DIPROPIONATE\CALCIPOTRIENE HYDRATE
     Route: 065
     Dates: start: 2019
  24. IMETH [METHOTREXATE] [Concomitant]
     Active Substance: METHOTREXATE
     Route: 065
     Dates: start: 20160804, end: 201702

REACTIONS (1)
  - Anaphylactic reaction [Recovered/Resolved]

NARRATIVE: CASE EVENT DATE: 20200512
